FAERS Safety Report 14483377 (Version 1)
Quarter: 2018Q1

REPORT INFORMATION
  Report Type: Spontaneous
  Country: US (occurrence: US)
  Receive Date: 20180204
  Receipt Date: 20180204
  Transmission Date: 20180509
  Serious: No
  Sender: FDA-Public Use
  Company Number: US-TARO-2017TAR00534

PATIENT
  Age: 30 Year
  Sex: Female
  Weight: 79.37 kg

DRUGS (1)
  1. KETOCONAZOLE CREAM 2% [Suspect]
     Active Substance: KETOCONAZOLE
     Indication: FUNGAL INFECTION
     Dosage: UNK, 2X/DAY
     Route: 061
     Dates: start: 201706, end: 20170624

REACTIONS (2)
  - Sunburn [Not Recovered/Not Resolved]
  - Inappropriate schedule of drug administration [Recovered/Resolved]

NARRATIVE: CASE EVENT DATE: 201706
